FAERS Safety Report 4604567-X (Version None)
Quarter: 2005Q2

REPORT INFORMATION
  Report Type: 
  Country: None (occurrence: None)
  Receive Date: 20050223
  Receipt Date: 20041130
  Transmission Date: 20051028
  Serious: No
  Sender: FDA-Public Use
  Company Number: PHEH2004US12760

PATIENT
  Age: 53 Year
  Sex: Female
  Weight: 65.8 kg

DRUGS (5)
  1. ZELNORM [Suspect]
     Indication: CONSTIPATION
     Dosage: 6 MG, BID
     Dates: start: 20041124
  2. DECADRON [Concomitant]
  3. SYNTHROID [Concomitant]
  4. NEXIUM [Concomitant]
  5. VITAMINS (NO INGREDIENTS / SUBSTANCES) [Concomitant]

REACTIONS (3)
  - DRY MOUTH [None]
  - URINE ODOUR ABNORMAL [None]
  - WEIGHT DECREASED [None]
